FAERS Safety Report 26101758 (Version 1)
Quarter: 2025Q4

REPORT INFORMATION
  Report Type: Report from Study
  Country: KR (occurrence: KR)
  Receive Date: 20251128
  Receipt Date: 20251128
  Transmission Date: 20260118
  Serious: Yes (Death, Other)
  Sender: SANOFI AVENTIS
  Company Number: KR-DialogSolutions-SAAVPROD-PI845280-C1

PATIENT

DRUGS (2)
  1. ANTI-THYMOCYTE GLOBULIN (RABBIT) NOS [Suspect]
     Active Substance: LAPINE T-LYMPHOCYTE IMMUNE GLOBULIN
     Indication: Aplastic anaemia
     Dosage: 2.5 MG/KG, QD (OVER AT LEAST 6 HOURS)
     Route: 042
  2. CYCLOSPORINE [Suspect]
     Active Substance: CYCLOSPORINE
     Indication: Aplastic anaemia
     Dosage: 5 OR 6 MG/KG/DAY TWICE DAILY (FROM DAY)

REACTIONS (2)
  - Pneumonia [Fatal]
  - Off label use [Fatal]
